FAERS Safety Report 7880404-5 (Version None)
Quarter: 2011Q4

REPORT INFORMATION
  Report Type: 
  Country: None (occurrence: None)
  Receive Date: 20111101
  Receipt Date: 20111019
  Transmission Date: 20120403
  Serious: Yes (Hospitalization)
  Sender: FDA-Public Use
  Company Number: PHHO2011SE01076

PATIENT
  Sex: Male

DRUGS (6)
  1. PREDNISOLONE [Suspect]
     Indication: PROPHYLAXIS
     Dosage: 10 MG, UNK
     Dates: start: 20100129
  2. ASPIRIN [Concomitant]
  3. EVEROLIMUS [Suspect]
     Indication: LIVER TRANSPLANT
     Dosage: 1.5MG + 1MG
     Route: 048
     Dates: start: 20100215, end: 20101210
  4. FLUCONAZOLE [Suspect]
     Indication: LIVER TRANSPLANT
     Dosage: 4 MG, UNK
     Dates: start: 20100115
  5. PENTRIUM [Concomitant]
  6. URSO FALK [Concomitant]

REACTIONS (4)
  - FALL [None]
  - OEDEMA PERIPHERAL [None]
  - FOOT FRACTURE [None]
  - PAIN IN EXTREMITY [None]
